FAERS Safety Report 12547956 (Version 1)
Quarter: 2016Q3

REPORT INFORMATION
  Report Type: Spontaneous
  Country: US (occurrence: None)
  Receive Date: 20160711
  Receipt Date: 20160711
  Transmission Date: 20161109
  Serious: Yes (Death)
  Sender: FDA-Public Use
  Company Number: None

PATIENT
  Age: 38 Year
  Sex: Male

DRUGS (15)
  1. TOPIRAMATE. [Concomitant]
     Active Substance: TOPIRAMATE
  2. LORAZEPAM. [Concomitant]
     Active Substance: LORAZEPAM
  3. LEXAPRO ESCITALOPRAM [Concomitant]
  4. ONDANSETRON [Suspect]
     Active Substance: ONDANSETRON
     Indication: NAUSEA
     Route: 048
  5. POTASSIUM CL [Concomitant]
     Active Substance: POTASSIUM CHLORIDE
  6. MIRTAZAPINE. [Concomitant]
     Active Substance: MIRTAZAPINE
  7. LABETALOL [Concomitant]
     Active Substance: LABETALOL\LABETALOL HYDROCHLORIDE
  8. ACETOMENOPHEN [Concomitant]
  9. BUPAP BUTAL/APAP [Suspect]
     Active Substance: ACETAMINOPHEN\BUTALBITAL
     Indication: HEADACHE
     Route: 048
  10. TAMSULOSIN [Concomitant]
     Active Substance: TAMSULOSIN
  11. LANSOPRAZOLE. [Concomitant]
     Active Substance: LANSOPRAZOLE
  12. CITALOPRAM [Concomitant]
     Active Substance: CITALOPRAM HYDROBROMIDE
  13. GABAPENTIN. [Concomitant]
     Active Substance: GABAPENTIN
  14. AMOXICILLIN. [Concomitant]
     Active Substance: AMOXICILLIN
  15. VITAMIN B12 [Concomitant]
     Active Substance: CYANOCOBALAMIN

REACTIONS (2)
  - Completed suicide [None]
  - Asphyxia [None]

NARRATIVE: CASE EVENT DATE: 20120204
